FAERS Safety Report 5678397-4 (Version None)
Quarter: 2008Q1

REPORT INFORMATION
  Report Type: 
  Country: None (occurrence: None)
  Receive Date: 20080320
  Receipt Date: 20080310
  Transmission Date: 20080703
  Serious: Yes (Other)
  Sender: FDA-Public Use
  Company Number: 2008SP005296

PATIENT
  Age: 58 Year
  Sex: Male

DRUGS (1)
  1. CLARITIN [Suspect]
     Indication: INFLUENZA
     Dosage: 10 MG; QD; PO
     Route: 048
     Dates: start: 20080218

REACTIONS (5)
  - COUGH [None]
  - DYSPHONIA [None]
  - INSOMNIA [None]
  - PSYCHOTIC DISORDER [None]
  - RENAL PAIN [None]
